FAERS Safety Report 12137345 (Version 1)
Quarter: 2016Q1

REPORT INFORMATION
  Report Type: Spontaneous
  Country: CN (occurrence: CN)
  Receive Date: 20160302
  Receipt Date: 20160302
  Transmission Date: 20160526
  Serious: Yes (Hospitalization)
  Sender: FDA-Public Use
  Company Number: CN-ASTRAZENECA-2016SE20550

PATIENT
  Age: 75 Year
  Sex: Female

DRUGS (6)
  1. BETALOC ZOK [Suspect]
     Active Substance: METOPROLOL SUCCINATE
     Indication: ATRIAL FIBRILLATION
     Route: 048
     Dates: start: 201409
  2. INSULIN [Concomitant]
     Active Substance: INSULIN NOS
     Dosage: 15 U, THREE TIMES A DAY
  3. NPH INSULIN [Concomitant]
     Active Substance: INSULIN BEEF
     Dosage: 15 U, AT NIGHT
  4. DIGOXIN. [Concomitant]
     Active Substance: DIGOXIN
     Dosage: HALF TABLET
     Dates: start: 201512
  5. BETALOC [Suspect]
     Active Substance: METOPROLOL TARTRATE
     Indication: ATRIAL FIBRILLATION
     Route: 048
     Dates: start: 201409
  6. HYPOGLYCEMIC DRUGS [Concomitant]
     Active Substance: UNSPECIFIED INGREDIENT
     Route: 048

REACTIONS (7)
  - Intentional product misuse [Unknown]
  - Decreased appetite [Unknown]
  - Oropharyngeal pain [Unknown]
  - Dyspnoea [Unknown]
  - Hyperglycaemia [Unknown]
  - Palpitations [Unknown]
  - Bronchitis [Recovered/Resolved]

NARRATIVE: CASE EVENT DATE: 201409
